FAERS Safety Report 9074601 (Version 1)
Quarter: 2013Q1

REPORT INFORMATION
  Report Type: Report from Study
  Country: US (occurrence: US)
  Receive Date: 20130128
  Receipt Date: 20130128
  Transmission Date: 20140127
  Serious: No
  Sender: FDA-Public Use
  Company Number: US-ABBOTT-12P-163-0915406-00

PATIENT
  Sex: Female

DRUGS (3)
  1. HUMIRA 40 MG/0.8 ML PEN [Suspect]
     Indication: PSORIASIS
     Dosage: 2 PENS ON DAY 1
     Route: 058
     Dates: start: 201202, end: 201202
  2. HUMIRA 40 MG/0.8 ML PEN [Suspect]
     Dosage: 1 PEN 1 WK LATER
     Route: 058
     Dates: start: 2012, end: 2012
  3. HUMIRA 40 MG/0.8 ML PEN [Suspect]
     Dosage: 1 PEN 2 WKS LATER UNDER SKIN
     Route: 058
     Dates: start: 2012

REACTIONS (2)
  - Headache [Unknown]
  - Injection site bruising [Unknown]
